FAERS Safety Report 16839419 (Version 1)
Quarter: 2019Q3

REPORT INFORMATION
  Report Type: Spontaneous
  Country: US (occurrence: US)
  Receive Date: 20190731
  Receipt Date: 20190731
  Transmission Date: 20191005
  Serious: Yes (Hospitalization)
  Sender: FDA-Public Use
  Company Number: None

PATIENT
  Age: 76 Year
  Sex: Male
  Weight: 74.84 kg

DRUGS (1)
  1. NAFCILLIN [Suspect]
     Active Substance: NAFCILLIN SODIUM
     Indication: OSTEOMYELITIS
     Route: 042
     Dates: start: 20190519, end: 20190627

REACTIONS (7)
  - Aspartate aminotransferase increased [None]
  - Alanine aminotransferase increased [None]
  - Nausea [None]
  - Jaundice [None]
  - Blood bilirubin unconjugated increased [None]
  - Vomiting [None]
  - Blood alkaline phosphatase increased [None]

NARRATIVE: CASE EVENT DATE: 20190710
